FAERS Safety Report 25281771 (Version 1)
Quarter: 2025Q2

REPORT INFORMATION
  Report Type: Spontaneous
  Country: US (occurrence: US)
  Receive Date: 20250508
  Receipt Date: 20250508
  Transmission Date: 20250716
  Serious: No
  Sender: BRISTOL-MYERS SQUIBB COMPANY
  Company Number: US-BRISTOL-MYERS SQUIBB COMPANY-2025-066522

PATIENT
  Age: 72 Year
  Sex: Female

DRUGS (1)
  1. ORENCIA [Suspect]
     Active Substance: ABATACEPT
     Indication: Rheumatoid arthritis
     Route: 058

REACTIONS (7)
  - Back pain [Unknown]
  - Arthralgia [Unknown]
  - Pain [Unknown]
  - Dysstasia [Unknown]
  - Productive cough [Unknown]
  - Pruritus [Unknown]
  - Secretion discharge [Unknown]
